APPROVED DRUG PRODUCT: OBETICHOLIC ACID
Active Ingredient: OBETICHOLIC ACID
Strength: 5MG
Dosage Form/Route: TABLET;ORAL
Application: A215017 | Product #001
Applicant: MSN LABORATORIES PRIVATE LTD
Approved: May 30, 2023 | RLD: No | RS: No | Type: DISCN